FAERS Safety Report 5243176-9 (Version None)
Quarter: 2007Q1

REPORT INFORMATION
  Report Type: 
  Country: None (occurrence: None)
  Receive Date: 20070215
  Receipt Date: 20070130
  Transmission Date: 20070707
  Serious: Yes (Other)
  Sender: FDA-Public Use
  Company Number: B0457489A

PATIENT
  Age: 25 Year
  Sex: Male

DRUGS (2)
  1. EPIVIR-HBV [Suspect]
     Indication: HEPATITIS
  2. INTERFERON (FORMULATION UNKNOWN) (INTERFERON) [Suspect]
     Indication: HEPATITIS

REACTIONS (4)
  - ALANINE AMINOTRANSFERASE INCREASED [None]
  - ASPARTATE AMINOTRANSFERASE INCREASED [None]
  - BLOOD ALKALINE PHOSPHATASE INCREASED [None]
  - DRUG RESISTANCE [None]
